FAERS Safety Report 8344883-1 (Version None)
Quarter: 2012Q2

REPORT INFORMATION
  Report Type: 
  Country: None (occurrence: None)
  Receive Date: 20120508
  Receipt Date: 20090731
  Transmission Date: 20120825
  Serious: Yes (Hospitalization)
  Sender: FDA-Public Use
  Company Number: US-TEVA-2009009001

PATIENT
  Sex: Female
  Weight: 67.192 kg

DRUGS (16)
  1. ADVAIR DISKUS 100/50 [Concomitant]
     Dosage: 4 DOSAGE FORMS;
     Dates: start: 20020101
  2. WARFARIN SODIUM [Concomitant]
     Dosage: 5 MILLIGRAM;
  3. VESICARE [Concomitant]
     Dosage: 10 MILLIGRAM;
  4. PRILOSEC [Concomitant]
     Dosage: 20 MILLIGRAM;
  5. ALBUTEROL [Concomitant]
     Dosage: 2 DOSAGE FORMS;
  6. VITRON C [Concomitant]
     Dosage: 500 MILLIGRAM;
  7. FOLIC ACID [Concomitant]
     Dosage: 400 MICROGRAM;
  8. FENTANYL [Concomitant]
     Dosage: 600 MICROGRAM;
     Route: 062
  9. MULTI-VITAMINS [Concomitant]
  10. LYRICA [Concomitant]
     Dosage: 225 MILLIGRAM;
     Dates: start: 20041101
  11. PREDNISONE TAB [Concomitant]
     Dosage: 5 MILLIGRAM;
     Dates: start: 19690101
  12. ALPRAZOLAM [Concomitant]
     Dosage: 1 MILLIGRAM;
     Dates: start: 20090201
  13. TETRACYCLINE [Concomitant]
     Dosage: 1000 MILLIGRAM;
     Dates: start: 20080101
  14. FORTEO [Concomitant]
     Dates: start: 20070328, end: 20090201
  15. FENTORA [Suspect]
     Indication: BACK PAIN
     Dosage: 3200 MICROGRAM;
     Route: 002
     Dates: start: 20080530, end: 20081201
  16. FUROSEMIDE [Concomitant]
     Dosage: 20 MILLIGRAM;

REACTIONS (4)
  - HALLUCINATION [None]
  - DENTAL CARIES [None]
  - URINARY TRACT INFECTION [None]
  - TOOTH FRACTURE [None]
